FAERS Safety Report 9775815 (Version 3)
Quarter: 2014Q1

REPORT INFORMATION
  Report Type: Spontaneous
  Country: US (occurrence: US)
  Receive Date: 20131220
  Receipt Date: 20140204
  Transmission Date: 20141002
  Serious: Yes (Other)
  Sender: FDA-Public Use
  Company Number: US-GLAXOSMITHKLINE-A1053228A

PATIENT
  Age: 65 Year
  Sex: Female

DRUGS (6)
  1. ADVAIR [Suspect]
     Indication: ASTHMA
     Dosage: 1PUFF PER DAY
     Route: 055
     Dates: start: 199812
  2. FLOVENT [Concomitant]
  3. FLONASE [Concomitant]
  4. SIMVASTATIN [Concomitant]
  5. ZYRTEC [Concomitant]
  6. SUPPLEMENT [Concomitant]

REACTIONS (5)
  - Lower respiratory tract infection [Recovered/Resolved]
  - Cough [Unknown]
  - Secretion discharge [Unknown]
  - Underdose [Unknown]
  - Product quality issue [Unknown]
